FAERS Safety Report 4528958-0 (Version None)
Quarter: 2004Q4

REPORT INFORMATION
  Report Type: 
  Country: None (occurrence: None)
  Receive Date: 20041214
  Receipt Date: 20041119
  Transmission Date: 20050328
  Serious: Yes (Hospitalization, Other)
  Sender: FDA-Public Use
  Company Number: WAES 0411USA03313

PATIENT
  Age: 58 Year
  Sex: Male

DRUGS (5)
  1. DECADRON [Suspect]
     Dosage: 8 MG/UNK; PO (SEE IMAGE)
     Route: 048
     Dates: start: 20041001, end: 20040101
  2. DECADRON [Suspect]
     Dosage: 8 MG/UNK; PO (SEE IMAGE)
     Route: 048
     Dates: start: 20040101, end: 20041001
  3. DECADRON [Suspect]
     Dosage: 8 MG/UNK; PO (SEE IMAGE)
     Route: 048
     Dates: start: 20040101
  4. CAP TEMOZOLOMIDE [Suspect]
     Indication: ASTROCYTOMA
     Dosage: PO
     Route: 048
     Dates: start: 20041013, end: 20041017
  5. RANITIDINE [Concomitant]

REACTIONS (10)
  - COMPUTERISED TOMOGRAM ABNORMAL [None]
  - DEPRESSED LEVEL OF CONSCIOUSNESS [None]
  - DIABETES MELLITUS INSULIN-DEPENDENT [None]
  - HEMIPARESIS [None]
  - LETHARGY [None]
  - MASS [None]
  - NAUSEA [None]
  - OEDEMA [None]
  - SOMNOLENCE [None]
  - VOMITING [None]
